FAERS Safety Report 10163060 (Version 1)
Quarter: 2014Q2

REPORT INFORMATION
  Report Type: Spontaneous
  Country: DK (occurrence: DK)
  Receive Date: 20140509
  Receipt Date: 20140509
  Transmission Date: 20141212
  Serious: Yes (Hospitalization)
  Sender: FDA-Public Use
  Company Number: PHHY2014DK054202

PATIENT
  Age: 15 Year
  Sex: Female

DRUGS (1)
  1. LINDYNETTE [Suspect]
     Indication: CONTRACEPTION
     Dates: start: 201008

REACTIONS (4)
  - Palpitations [Recovered/Resolved]
  - Syncope [Not Recovered/Not Resolved]
  - Pulmonary embolism [Recovered/Resolved]
  - Anxiety [Unknown]
